FAERS Safety Report 5139246-6 (Version None)
Quarter: 2006Q4

REPORT INFORMATION
  Report Type: 
  Country: None (occurrence: None)
  Receive Date: 20061024
  Receipt Date: 20061013
  Transmission Date: 20070319
  Serious: Yes (Death)
  Sender: FDA-Public Use
  Company Number: 2006US002280

PATIENT
  Age: 58 Year
  Sex: Male

DRUGS (4)
  1. PROGRAF [Suspect]
     Indication: PROPHYLAXIS
     Dosage: 1 MG, UID/QD, UNK
  2. SIROLIMUS(SIROLIMUS) [Suspect]
     Indication: GRAFT VERSUS HOST DISEASE
     Dosage: 0.4 MG, UID/QD, UNK
  3. VORICONAZOLE(VORICONAZOLE) [Suspect]
     Indication: PNEUMONIA
     Dosage: 400 MG, UID/QD, UNK
  4. AMBISOME [Concomitant]

REACTIONS (2)
  - ACUTE RESPIRATORY DISTRESS SYNDROME [None]
  - ENTEROCOCCAL BACTERAEMIA [None]
